FAERS Safety Report 13244452 (Version 1)
Quarter: 2017Q1

REPORT INFORMATION
  Report Type: Spontaneous
  Country: TW (occurrence: TW)
  Receive Date: 20170217
  Receipt Date: 20170217
  Transmission Date: 20170428
  Serious: Yes (Life-Threatening)
  Sender: FDA-Public Use
  Company Number: TW-DSJP-DSJ-2017-104557

PATIENT

DRUGS (1)
  1. OLMESARTAN AND AMLODIPINE [Suspect]
     Active Substance: AMLODIPINE BESYLATE\OLMESARTAN MEDOXOMIL
     Indication: HYPERTENSION
     Dosage: 20/5MG, BID
     Route: 048
     Dates: start: 20141023, end: 20150605

REACTIONS (1)
  - Shock [Unknown]
